FAERS Safety Report 23526545 (Version 1)
Quarter: 2024Q1

REPORT INFORMATION
  Report Type: Spontaneous
  Country: US (occurrence: None)
  Receive Date: 20240214
  Receipt Date: 20240214
  Transmission Date: 20240410
  Serious: Yes (Hospitalization)
  Sender: FDA-Public Use
  Company Number: None

PATIENT
  Age: 61 Year
  Sex: Male
  Weight: 106.2 kg

DRUGS (1)
  1. VYVGART [Suspect]
     Active Substance: EFGARTIGIMOD ALFA-FCAB
     Dates: start: 20240109, end: 20240209

REACTIONS (3)
  - Infusion related reaction [None]
  - Back pain [None]
  - Muscle spasms [None]

NARRATIVE: CASE EVENT DATE: 20240209
